FAERS Safety Report 8158538-X (Version None)
Quarter: 2012Q1

REPORT INFORMATION
  Report Type: 
  Country: None (occurrence: None)
  Receive Date: 20120210
  Receipt Date: 20120130
  Transmission Date: 20120608
  Serious: Yes (Hospitalization)
  Sender: FDA-Public Use
  Company Number: AECAN201200034

PATIENT
  Age: 52 Year
  Sex: Female
  Weight: 97.1 kg

DRUGS (8)
  1. FLOVENT [Concomitant]
  2. GAMUNEX [Suspect]
     Indication: IDIOPATHIC THROMBOCYTOPENIC PURPURA
     Dosage: 100 GM;1X;IV
     Route: 042
     Dates: start: 20120124, end: 20120124
  3. CRESTOR [Concomitant]
  4. ATENOLOL [Concomitant]
  5. GLYBURIDE [Concomitant]
  6. METFORMIN HCL [Concomitant]
  7. MELOXICAM [Concomitant]
  8. IGIVNEX [Suspect]
     Indication: IDIOPATHIC THROMBOCYTOPENIC PURPURA
     Dosage: 100 GM;1X;IV
     Route: 042
     Dates: start: 20120123, end: 20120123

REACTIONS (2)
  - HAEMOLYSIS [None]
  - BLOOD URINE PRESENT [None]
